FAERS Safety Report 25584921 (Version 1)
Quarter: 2025Q3

REPORT INFORMATION
  Report Type: Spontaneous
  Country: US (occurrence: None)
  Receive Date: 20250717
  Receipt Date: 20250717
  Transmission Date: 20251021
  Serious: No
  Sender: FDA-CTU
  Company Number: None

PATIENT
  Age: 46 Year
  Sex: Female
  Weight: 85.5 kg

DRUGS (5)
  1. XYZAL [Suspect]
     Active Substance: LEVOCETIRIZINE DIHYDROCHLORIDE
     Indication: Multiple allergies
     Dosage: 1 TABLET(S) AT BEDTIME
     Route: 048
     Dates: start: 20230701, end: 20250714
  2. Spirolactatone [Concomitant]
  3. ZEPBOUND [Concomitant]
     Active Substance: TIRZEPATIDE
  4. ESCITALOPRAM [Concomitant]
     Active Substance: ESCITALOPRAM OXALATE
  5. IRON [Concomitant]
     Active Substance: IRON

REACTIONS (1)
  - Pruritus [None]

NARRATIVE: CASE EVENT DATE: 20250717
